FAERS Safety Report 7531339-9 (Version None)
Quarter: 2011Q2

REPORT INFORMATION
  Report Type: 
  Country: None (occurrence: None)
  Receive Date: 20110608
  Receipt Date: 20110525
  Transmission Date: 20111010
  Serious: Yes (Other)
  Sender: FDA-Public Use
  Company Number: PHHY2011FR32083

PATIENT
  Age: 74 Year
  Sex: Female

DRUGS (6)
  1. RASILEZ [Suspect]
     Dosage: 300 MG, QD
     Dates: end: 20110411
  2. ANTIBIOTICS [Concomitant]
  3. NEBIVOLOL HCL [Concomitant]
  4. FLECAINIDE ACETATE [Concomitant]
  5. RASILEZ [Suspect]
     Indication: HYPERTENSION
     Dosage: 150 MG, UNK
  6. LEVOTHYROXINE SODIUM [Concomitant]
     Indication: THYROID DISORDER

REACTIONS (3)
  - LUNG CANCER METASTATIC [None]
  - GALLBLADDER PAIN [None]
  - OEDEMA PERIPHERAL [None]
